FAERS Safety Report 7693345-3 (Version None)
Quarter: 2011Q3

REPORT INFORMATION
  Report Type: 
  Country: None (occurrence: None)
  Receive Date: 20110819
  Receipt Date: 20110606
  Transmission Date: 20111222
  Serious: No
  Sender: FDA-Public Use
  Company Number: US-BAYER-2011-048747

PATIENT
  Age: 39 Year
  Sex: Female

DRUGS (1)
  1. MIRENA [Suspect]
     Dosage: 20 MCG/24HR, CONT
     Route: 015
     Dates: start: 20100601, end: 20110501

REACTIONS (6)
  - HYPERTRICHOSIS [None]
  - ALOPECIA [None]
  - MOOD SWINGS [None]
  - MADAROSIS [None]
  - ABDOMINAL DISTENSION [None]
  - NIGHT SWEATS [None]
